FAERS Safety Report 24654403 (Version 1)
Quarter: 2024Q4

REPORT INFORMATION
  Report Type: Spontaneous
  Country: US (occurrence: None)
  Receive Date: 20241122
  Receipt Date: 20241122
  Transmission Date: 20250115
  Serious: Yes (Other)
  Sender: Public
  Company Number: None

PATIENT
  Age: 51 Year
  Sex: Female
  Weight: 51.75 kg

DRUGS (1)
  1. SINGULAIR [Suspect]
     Active Substance: MONTELUKAST SODIUM

REACTIONS (4)
  - Nightmare [None]
  - Loss of personal independence in daily activities [None]
  - Insomnia [None]
  - Middle insomnia [None]

NARRATIVE: CASE EVENT DATE: 20240901
